FAERS Safety Report 16273662 (Version 24)
Quarter: 2022Q1

REPORT INFORMATION
  Report Type: Report from Study
  Country: IL (occurrence: IL)
  Receive Date: 20190506
  Receipt Date: 20220104
  Transmission Date: 20220424
  Serious: Yes (Hospitalization, Other)
  Sender: FDA-Public Use
  Company Number: IL-ABBVIE-19K-082-2735071-00

PATIENT
  Age: 67 Year
  Sex: Male
  Weight: 73 kg

DRUGS (47)
  1. VENCLEXTA [Suspect]
     Active Substance: VENETOCLAX
     Indication: Chronic lymphocytic leukaemia
     Dosage: DOSE INCREASE ACCORDING TO VENETOCLAX DOSE TITRATION SCHEME
     Route: 048
     Dates: start: 20190304, end: 20190310
  2. VENCLEXTA [Suspect]
     Active Substance: VENETOCLAX
     Dosage: DOSE INCREASE ACCORDING TO VENETOCLAX DOSE TITRATION SCHEME
     Route: 048
     Dates: start: 20190311, end: 20190317
  3. VENCLEXTA [Suspect]
     Active Substance: VENETOCLAX
     Dosage: DOSE INCREASE ACCORDING TO VENETOCLAX DOSE TITRATION SCHEME
     Route: 048
     Dates: start: 20190318, end: 20190331
  4. VENCLEXTA [Suspect]
     Active Substance: VENETOCLAX
     Dosage: DOSE INCREASE ACCORDING TO VENETOCLAX DOSE TITRATION SCHEME
     Route: 048
     Dates: start: 20190401, end: 20190407
  5. VENCLEXTA [Suspect]
     Active Substance: VENETOCLAX
     Dosage: INTERRUPTION DUE TO AN ADVERSE EVENT
     Route: 048
     Dates: start: 20190408, end: 20190421
  6. VENCLEXTA [Suspect]
     Active Substance: VENETOCLAX
     Dosage: INTERRUPTION DUE TO AN ADVERSE EVENT
     Route: 048
     Dates: start: 20190422, end: 20190605
  7. VENCLEXTA [Suspect]
     Active Substance: VENETOCLAX
     Dosage: MODIFICATION TO THE DAILY DOSE DUE TO AN ADVERSE EVENT
     Route: 048
     Dates: start: 20190606, end: 20190615
  8. VENCLEXTA [Suspect]
     Active Substance: VENETOCLAX
     Dosage: MODIFICATION TO THE DAILY DOSE DUE TO AN ADVERSE EVENT
     Route: 048
     Dates: start: 20190616, end: 20190707
  9. VENCLEXTA [Suspect]
     Active Substance: VENETOCLAX
     Dosage: MODIFICATION TO THE DAILY DOSE.?OTHER-BACK TO DAILY DOSE
     Route: 048
     Dates: start: 20190708, end: 20190915
  10. VENCLEXTA [Suspect]
     Active Substance: VENETOCLAX
     Dosage: DOSE INCREASED
     Route: 048
     Dates: start: 20190916, end: 20200505
  11. VENCLEXTA [Suspect]
     Active Substance: VENETOCLAX
     Dosage: DOSE DECREASED
     Route: 048
     Dates: start: 20200506, end: 20201201
  12. VENCLEXTA [Suspect]
     Active Substance: VENETOCLAX
     Route: 048
     Dates: start: 20201202
  13. VENCLEXTA [Suspect]
     Active Substance: VENETOCLAX
     Dosage: TREATMENT COMPLETION
     Route: 048
     Dates: start: 20201217, end: 20210412
  14. RITUXIMAB [Suspect]
     Active Substance: RITUXIMAB
     Indication: Chronic lymphocytic leukaemia
     Dosage: CYCLE NUMBER 1
     Route: 065
     Dates: start: 20190624, end: 20190624
  15. RITUXIMAB [Suspect]
     Active Substance: RITUXIMAB
     Dosage: CYCLE 2
     Route: 065
     Dates: start: 20190722, end: 20190722
  16. RITUXIMAB [Suspect]
     Active Substance: RITUXIMAB
     Dosage: CYCLE 3
     Route: 065
     Dates: start: 20190819, end: 20190819
  17. RITUXIMAB [Suspect]
     Active Substance: RITUXIMAB
     Dosage: CYCLE 4
     Route: 065
     Dates: start: 20190916, end: 20190916
  18. RITUXIMAB [Suspect]
     Active Substance: RITUXIMAB
     Dosage: CYCLE 5
     Route: 065
     Dates: start: 20191015, end: 20191015
  19. RITUXIMAB [Suspect]
     Active Substance: RITUXIMAB
     Dosage: CYCLE 6
     Route: 065
     Dates: start: 20191111, end: 20191111
  20. NEUPOGEN [Concomitant]
     Active Substance: FILGRASTIM
     Indication: Neutropenia
     Dates: start: 20190729
  21. SOTALOL [Concomitant]
     Active Substance: SOTALOL
     Indication: Cardiac disorder
     Dates: start: 20190606
  22. SOTALOL [Concomitant]
     Active Substance: SOTALOL
     Indication: Hypertension
  23. COLCHICINE [Concomitant]
     Active Substance: COLCHICINE
     Indication: Familial mediterranean fever
     Dates: start: 20190530
  24. BISOPROLOL [Concomitant]
     Active Substance: BISOPROLOL
     Indication: Hypertension
     Dates: start: 20180123, end: 20190606
  25. CITALOPRAM [Concomitant]
     Active Substance: CITALOPRAM HYDROBROMIDE
     Indication: Prophylaxis
     Dates: start: 20161117
  26. CILAZAPRIL ANHYDROUS [Concomitant]
     Active Substance: CILAZAPRIL ANHYDROUS
     Indication: Hyperlipidaemia
     Dates: start: 20050515
  27. ISOSORBIDE DINITRATE [Concomitant]
     Active Substance: ISOSORBIDE DINITRATE
     Indication: Cardiac fibrillation
     Dosage: SPRAY
     Dates: start: 2017
  28. ACYCLOVIR [Concomitant]
     Active Substance: ACYCLOVIR
     Indication: Herpes zoster
     Route: 065
     Dates: start: 20181227
  29. CITALOPRAM [Concomitant]
     Active Substance: CITALOPRAM HYDROBROMIDE
     Indication: Prophylaxis
     Route: 065
     Dates: start: 20081103
  30. LIPITOR [Concomitant]
     Active Substance: ATORVASTATIN CALCIUM
     Indication: Hyperlipidaemia
     Route: 065
     Dates: start: 20101125
  31. CILAZAPRIL ANHYDROUS [Concomitant]
     Active Substance: CILAZAPRIL ANHYDROUS
     Indication: Hyperlipidaemia
     Route: 065
     Dates: start: 20081130, end: 20201017
  32. PRALUENT [Concomitant]
     Active Substance: ALIROCUMAB
     Indication: Cardiovascular disorder
     Route: 065
     Dates: start: 20170208
  33. TUSSOPHEDRINE NEW FORMULA [Concomitant]
     Indication: Cough
     Route: 065
     Dates: start: 20200420
  34. IBUFEN D [Concomitant]
     Indication: Pain
     Route: 048
     Dates: start: 20200520
  35. DOXYCYCLINE HYDROCHLORIDE [Concomitant]
     Active Substance: DOXYCYCLINE HYDROCHLORIDE
     Indication: Skin wound
     Route: 065
     Dates: start: 20200317, end: 20200318
  36. VECTOR PLUS [Concomitant]
     Indication: Hypertension
     Route: 065
     Dates: start: 20200305, end: 20200402
  37. SYMBICORT [Concomitant]
     Active Substance: BUDESONIDE\FORMOTEROL FUMARATE DIHYDRATE
     Indication: Respiratory disorder prophylaxis
     Route: 065
     Dates: start: 20150114, end: 20200216
  38. RELAXIN PORCINE [Concomitant]
     Active Substance: RELAXIN PORCINE
     Indication: Stress
     Route: 065
     Dates: start: 20141008, end: 20200410
  39. NERVEN [Concomitant]
     Indication: Stress
     Route: 065
     Dates: start: 20200620
  40. NERVEN [Concomitant]
     Indication: Anxiety
  41. CEREBONIN [Concomitant]
     Indication: Dementia
     Route: 065
     Dates: start: 20191205
  42. MAGNESIUM [Concomitant]
     Active Substance: MAGNESIUM
     Indication: Mineral supplementation
     Dates: start: 20200726
  43. MAALOX ANTACID [Concomitant]
     Active Substance: ALUMINUM HYDROXIDE\DIMETHICONE\MAGNESIUM HYDROXIDE
     Indication: Dyspepsia
     Route: 048
     Dates: start: 20120704
  44. OTRIVIN [Concomitant]
     Active Substance: XYLOMETAZOLINE
     Indication: Respiration abnormal
     Dates: start: 20131013
  45. CALCIUM CARBONATE\CHOLECALCIFEROL [Concomitant]
     Active Substance: CALCIUM CARBONATE\CHOLECALCIFEROL
     Indication: Vitamin supplementation
     Dates: start: 20131013
  46. CALCIUM CARBONATE\CHOLECALCIFEROL [Concomitant]
     Active Substance: CALCIUM CARBONATE\CHOLECALCIFEROL
     Indication: Mineral supplementation
     Dates: start: 20200607
  47. JARDIANCE [Concomitant]
     Active Substance: EMPAGLIFLOZIN
     Indication: Type 2 diabetes mellitus
     Dates: start: 20210506

REACTIONS (31)
  - Carotid endarterectomy [Recovered/Resolved]
  - Cardiac fibrillation [Recovered/Resolved]
  - Haemoptysis [Recovered/Resolved]
  - Pyrexia [Recovered/Resolved]
  - Carotid artery stenosis [Recovered/Resolved]
  - Atrial fibrillation [Recovered/Resolved]
  - Angiopathy [Recovered/Resolved]
  - Viral infection [Recovered/Resolved]
  - Vomiting [Recovered/Resolved]
  - Pyrexia [Recovered/Resolved]
  - Vomiting [Recovered/Resolved]
  - Dizziness [Recovered/Resolved]
  - Haematoma [Recovered/Resolved]
  - Muscular weakness [Recovered/Resolved]
  - Gout [Recovered/Resolved]
  - Carotid endarterectomy [Unknown]
  - Pyrexia [Unknown]
  - Pollakiuria [Recovered/Resolved]
  - Haematoma [Recovered/Resolved]
  - Asthenia [Recovered/Resolved]
  - Weight decreased [Unknown]
  - Abdominal pain [Unknown]
  - Diarrhoea [Recovered/Resolved]
  - Neutropenia [Recovered/Resolved]
  - Neutropenia [Recovered/Resolved]
  - Leukopenia [Recovered/Resolved]
  - Tumour lysis syndrome [Unknown]
  - Diarrhoea [Recovered/Resolved]
  - Neutropenia [Not Recovered/Not Resolved]
  - Diarrhoea [Recovered/Resolved]
  - Neutropenia [Recovered/Resolved]

NARRATIVE: CASE EVENT DATE: 20190101
